FAERS Safety Report 15500648 (Version 3)
Quarter: 2018Q4

REPORT INFORMATION
  Report Type: Report from Study
  Country: None (occurrence: IL)
  Receive Date: 20181015
  Receipt Date: 20181029
  Transmission Date: 20190205
  Serious: Yes (Death, Disabling)
  Sender: FDA-Public Use
  Company Number: IL-ABBVIE-18K-082-2255347-00

PATIENT
  Sex: Male

DRUGS (2)
  1. DUODOPA [Suspect]
     Active Substance: CARBIDOPA\LEVODOPA
     Indication: PARKINSON^S DISEASE
     Dosage: CURRENT MD- 10 ML, CURRENT FIXED RATE- 4.8 ML/ HOUR, CURRENT ED- 2.0 ML
     Route: 050
     Dates: start: 20170423
  2. DUODOPA [Suspect]
     Active Substance: CARBIDOPA\LEVODOPA
     Dosage: CURRENT- MD 13ML, CD 5ML/HOUR, ED 2ML.
     Route: 050
     Dates: start: 20170422

REACTIONS (5)
  - Loss of personal independence in daily activities [Unknown]
  - Dysphagia [Unknown]
  - General physical health deterioration [Fatal]
  - Speech disorder [Unknown]
  - Respiratory arrest [Fatal]
